FAERS Safety Report 22900281 (Version 4)
Quarter: 2023Q4

REPORT INFORMATION
  Report Type: Other
  Country: AE (occurrence: None)
  Receive Date: 20230904
  Receipt Date: 20231013
  Transmission Date: 20240110
  Serious: Yes (Hospitalization)
  Sender: FDA-Public Use
  Company Number: AE-ROCHE-3412229

PATIENT
  Age: 68 Year
  Sex: Male

DRUGS (1)
  1. OCREVUS [Suspect]
     Active Substance: OCRELIZUMAB
     Indication: Primary progressive multiple sclerosis
     Dosage: LAST DOSE 07/JUL/2023
     Route: 042

REACTIONS (3)
  - Fall [Unknown]
  - Cerebral haemorrhage [Recovering/Resolving]
  - Malaise [Recovering/Resolving]
